FAERS Safety Report 5504749-9 (Version None)
Quarter: 2007Q4

REPORT INFORMATION
  Report Type: 
  Country: None (occurrence: None)
  Receive Date: 20071102
  Receipt Date: 20071024
  Transmission Date: 20080405
  Serious: Yes (Other)
  Sender: FDA-Public Use
  Company Number: NO-ASTRAZENECA-2007SE05710

PATIENT
  Age: 52 Year
  Sex: Female

DRUGS (5)
  1. PROPOFOL [Suspect]
     Indication: ANAESTHESIA
     Route: 042
     Dates: start: 20071016, end: 20071016
  2. REMIFENTANIL [Suspect]
     Indication: ANAESTHESIA
     Route: 042
     Dates: start: 20071016, end: 20071016
  3. ACETAMINOPHEN [Concomitant]
  4. VOLTAREN [Concomitant]
  5. OXYCONTIN [Concomitant]

REACTIONS (1)
  - BRONCHIAL OBSTRUCTION [None]
